FAERS Safety Report 13790434 (Version 5)
Quarter: 2017Q4

REPORT INFORMATION
  Report Type: Report from Study
  Country: US (occurrence: US)
  Receive Date: 20170725
  Receipt Date: 20171107
  Transmission Date: 20180320
  Serious: Yes (Hospitalization, Other)
  Sender: FDA-Public Use
  Company Number: US-AMGEN-USASP2017108577

PATIENT
  Age: 84 Year
  Sex: Male
  Weight: 64 kg

DRUGS (6)
  1. LASIX [Concomitant]
     Active Substance: FUROSEMIDE
  2. XYLOL [Concomitant]
     Indication: RASH
  3. REPATHA [Suspect]
     Active Substance: EVOLOCUMAB
     Indication: BLOOD CHOLESTEROL INCREASED
     Dosage: 140 MG, Q2WK
     Route: 058
     Dates: start: 20170504, end: 20170518
  4. VASOTEC [Concomitant]
     Active Substance: ENALAPRIL MALEATE
  5. ASA [Concomitant]
     Active Substance: ASPIRIN
  6. PROTONIX [Concomitant]
     Active Substance: PANTOPRAZOLE SODIUM

REACTIONS (7)
  - Oedema peripheral [Unknown]
  - Leukocytosis [Unknown]
  - Formication [Unknown]
  - Dermatitis [Recovering/Resolving]
  - Pain in extremity [Unknown]
  - Drug eruption [Not Recovered/Not Resolved]
  - Erythema [Unknown]

NARRATIVE: CASE EVENT DATE: 2017
